FAERS Safety Report 21228806 (Version 1)
Quarter: 2022Q3

REPORT INFORMATION
  Report Type: Spontaneous
  Country: US (occurrence: US)
  Receive Date: 20220818
  Receipt Date: 20220818
  Transmission Date: 20221027
  Serious: No
  Sender: FDA-Public Use
  Company Number: US-PFIZER INC-PV202200045370

PATIENT
  Age: 52 Year
  Sex: Female

DRUGS (2)
  1. SULFASALAZINE [Suspect]
     Active Substance: SULFASALAZINE
     Indication: Colitis ulcerative
     Dosage: 500 MG, 4X/DAY (2 TABLETS IN THE MORNING AND 2 BEFORE BED)
     Route: 048
     Dates: start: 202207, end: 20220814
  2. FOLIC ACID [Concomitant]
     Active Substance: FOLIC ACID
     Dosage: 3 MG

REACTIONS (1)
  - Diarrhoea [Unknown]

NARRATIVE: CASE EVENT DATE: 20220719
